FAERS Safety Report 4512091-8 (Version None)
Quarter: 2004Q4

REPORT INFORMATION
  Report Type: 
  Country: None (occurrence: None)
  Receive Date: 20041123
  Receipt Date: 20041101
  Transmission Date: 20050328
  Serious: Yes (Hospitalization, Other)
  Sender: FDA-Public Use
  Company Number: 2004091215

PATIENT
  Age: 53 Year
  Sex: Female
  Weight: 65.7716 kg

DRUGS (6)
  1. LIPITOR [Suspect]
     Indication: ILL-DEFINED DISORDER
  2. NEURONTIN [Suspect]
     Indication: BIPOLAR DISORDER
     Dosage: 2400 MG (400 MG, 2 IN 1 D), ORAL
     Route: 048
  3. GABAPENTIN [Suspect]
     Indication: BIPOLAR DISORDER
     Dosage: 1600 MG (400 MG, 2 IN 1 D), ORAL
     Route: 048
     Dates: start: 20041028
  4. ROFEXOXIB (ROFECOXIB) [Suspect]
     Indication: ILL-DEFINED DISORDER
  5. SIMVASTATIN [Suspect]
     Indication: ILL-DEFINED DISORDER
  6. MINOXIDIL [Concomitant]

REACTIONS (9)
  - ABDOMINAL PAIN UPPER [None]
  - APHASIA [None]
  - CEREBROVASCULAR ACCIDENT [None]
  - CORONARY ARTERY OCCLUSION [None]
  - DYSPEPSIA [None]
  - HAEMATOCHEZIA [None]
  - MUSCLE CRAMP [None]
  - PHARMACEUTICAL PRODUCT COMPLAINT [None]
  - TREATMENT NONCOMPLIANCE [None]
